FAERS Safety Report 5318131-0 (Version None)
Quarter: 2007Q1

REPORT INFORMATION
  Report Type: 
  Country: None (occurrence: None)
  Receive Date: 20070201
  Receipt Date: 20060821
  Transmission Date: 20070707
  Serious: Yes (Hospitalization)
  Sender: FDA-Public Use
  Company Number: MEDI-0004849

PATIENT
  Age: 64 Year
  Sex: Male
  Weight: 75.2971 kg

DRUGS (12)
  1. ETHYOL [Suspect]
     Indication: RADIOTHERAPY
     Dosage: SEE IMAGE
     Route: 058
     Dates: start: 20060717, end: 20060724
  2. ETHYOL [Suspect]
     Indication: RADIOTHERAPY
     Dosage: SEE IMAGE
     Route: 058
     Dates: start: 20060731, end: 20060802
  3. ETHYOL [Suspect]
     Indication: RADIOTHERAPY
     Dosage: SEE IMAGE
     Route: 058
     Dates: start: 20060809, end: 20060809
  4. CISPLATIN [Concomitant]
  5. RADIATION THERAPY [Concomitant]
  6. KYRTIL (GRANISETRON) [Concomitant]
  7. ZYRTEC [Concomitant]
  8. OXYCODONE HCL [Concomitant]
  9. DURAGESIC-100 [Concomitant]
  10. LEXAPRO [Concomitant]
  11. COMPAZINE [Concomitant]
  12. CITRATE MAGNESIUM (MAGNESIUM CITRATE) [Concomitant]

REACTIONS (4)
  - DEHYDRATION [None]
  - DIARRHOEA [None]
  - PYREXIA [None]
  - VOMITING [None]
